FAERS Safety Report 16905834 (Version 2)
Quarter: 2020Q1

REPORT INFORMATION
  Report Type: Spontaneous
  Country: US (occurrence: US)
  Receive Date: 20191010
  Receipt Date: 20200103
  Transmission Date: 20200409
  Serious: No
  Sender: FDA-Public Use
  Company Number: US-ACTELION-A-NJ2019-196646

PATIENT
  Sex: Female

DRUGS (1)
  1. OPSUMIT [Suspect]
     Active Substance: MACITENTAN
     Indication: PULMONARY ARTERIAL HYPERTENSION
     Dosage: 10 MG, QD
     Route: 048
     Dates: start: 20190712

REACTIONS (5)
  - Blood sodium abnormal [Unknown]
  - Nasopharyngitis [Recovering/Resolving]
  - Blood potassium abnormal [Unknown]
  - Electrolyte imbalance [Unknown]
  - Renal impairment [Unknown]
